FAERS Safety Report 26103282 (Version 1)
Quarter: 2025Q4

REPORT INFORMATION
  Report Type: Spontaneous
  Country: US (occurrence: US)
  Receive Date: 20251129
  Receipt Date: 20251129
  Transmission Date: 20260118
  Serious: No
  Sender: IBSA INSTITUT BIOCHIMIQUE
  Company Number: US-IBSA PHARMA INC.-2025IBS000340

PATIENT

DRUGS (4)
  1. TIROSINT [Suspect]
     Active Substance: LEVOTHYROXINE SODIUM
     Indication: Thyroidectomy
     Dosage: 100 MICROGRAM
     Dates: start: 2020, end: 20250428
  2. TIROSINT [Suspect]
     Active Substance: LEVOTHYROXINE SODIUM
     Dosage: 112 MICROGRAM
     Dates: start: 20250428
  3. ZEPBOUND [Concomitant]
     Active Substance: TIRZEPATIDE
     Indication: Weight decreased
     Dosage: UNK
     Dates: start: 20250131
  4. ZOLOFT [Concomitant]
     Active Substance: SERTRALINE HYDROCHLORIDE
     Indication: Anxiety
     Dosage: UNK
     Dates: start: 2019

REACTIONS (2)
  - Blood thyroid stimulating hormone increased [Recovered/Resolved]
  - Intentional product misuse [Unknown]
